FAERS Safety Report 19455082 (Version 2)
Quarter: 2021Q3

REPORT INFORMATION
  Report Type: Spontaneous
  Country: US (occurrence: US)
  Receive Date: 20210623
  Receipt Date: 20210706
  Transmission Date: 20211014
  Serious: Yes (Death)
  Sender: FDA-Public Use
  Company Number: US-ENDO PHARMACEUTICALS INC-2021-009856

PATIENT
  Age: 1 Year
  Sex: Male

DRUGS (4)
  1. VIGABATRIN. [Suspect]
     Active Substance: VIGABATRIN
     Dosage: 500 MG IN THE MORNING AND 1000 MG IN THE EVENING VIA GI TUBE
     Dates: start: 20190911
  2. VIGABATRIN. [Suspect]
     Active Substance: VIGABATRIN
     Dosage: 500 MG IN THE MORNING AND 1000 MG IN THE EVENING VIA GI TUBE
     Dates: start: 20190911
  3. VIGABATRIN. [Suspect]
     Active Substance: VIGABATRIN
     Indication: EPILEPSY
     Dosage: 1250 MG, DAILY, MIX 1 PACKET IN 10 MG WATER AND GIVE 500 MG IN AM, MIX 2 PCKTS IN 20 ML WATER 750MG
     Route: 065
  4. VIGABATRIN. [Suspect]
     Active Substance: VIGABATRIN
     Indication: EPILEPSY
     Dosage: 1250 MG, DAILY, MIX 1 PACKET IN 10 MG WATER AND GIVE 500 MG IN AM, MIX 2 PCKTS IN 20 ML WATER 750MG
     Route: 065

REACTIONS (2)
  - Sudden unexplained death in epilepsy [Fatal]
  - Off label use [Unknown]

NARRATIVE: CASE EVENT DATE: 20190911
